FAERS Safety Report 4694003-X (Version None)
Quarter: 2005Q2

REPORT INFORMATION
  Report Type: 
  Country: None (occurrence: None)
  Receive Date: 20050616
  Receipt Date: 20050607
  Transmission Date: 20051028
  Serious: Yes (Hospitalization)
  Sender: FDA-Public Use
  Company Number: COV2-2005-00060

PATIENT
  Age: 51 Year
  Sex: Female
  Weight: 69 kg

DRUGS (11)
  1. FOSRENOL(LANTHANUM CARBONATE 500MG) [Suspect]
     Indication: HYPERPHOSPHATAEMIA
     Dosage: 1250 MG, 3X/DAY: TID, ORAL
     Route: 048
     Dates: start: 20050404, end: 20050604
  2. SENSIPAR TABLET [Concomitant]
  3. DARVOCET -N (DEXTROPROPOXYPHENE, NAPSILATE) TABELT [Concomitant]
  4. LEVAQUIN [Concomitant]
  5. CATAPRES (CLONIDINE) TABLET [Concomitant]
  6. PRINIVIL [Concomitant]
  7. NEURONTIN 9GABAPENTIN) TABLET [Concomitant]
  8. NEXIUM /USA/(ESOMEPRAZOLE MAGNESIUM) [Concomitant]
  9. DIALYVITE [Concomitant]
  10. COMBIVIENT /GFR/(SALBUTAMOL SULFATE, IPRATROPIUM BROMIDE) [Concomitant]
  11. ELAVIL [Concomitant]

REACTIONS (1)
  - SMALL INTESTINAL OBSTRUCTION [None]
